FAERS Safety Report 7899856-X (Version None)
Quarter: 2011Q4

REPORT INFORMATION
  Report Type: 
  Country: None (occurrence: None)
  Receive Date: 20111107
  Receipt Date: 20110926
  Transmission Date: 20120403
  Serious: No
  Sender: FDA-Public Use
  Company Number: US-AMGEN-USASP2011039999

PATIENT
  Sex: Female

DRUGS (3)
  1. ENBREL [Suspect]
     Indication: RHEUMATOID ARTHRITIS
     Dosage: 50 MG, WEEKLY
     Dates: start: 20070101
  2. METHOTREXATE [Concomitant]
     Dosage: UNK, WEEKLY
  3. METHOTREXATE [Concomitant]
     Dosage: UNK, WEEKLY

REACTIONS (1)
  - INJECTION SITE INJURY [None]
